FAERS Safety Report 22078497 (Version 1)
Quarter: 2023Q1

REPORT INFORMATION
  Report Type: Spontaneous
  Country: US (occurrence: None)
  Receive Date: 20230308
  Receipt Date: 20230308
  Transmission Date: 20230418
  Serious: Yes (unspecified)
  Sender: FDA-Public Use
  Company Number: None

PATIENT
  Age: 84 Year
  Sex: Female
  Weight: 84.54 kg

DRUGS (2)
  1. VEDOLIZUMAB [Suspect]
     Active Substance: VEDOLIZUMAB
     Dosage: 300 MG EVERY FOUR WEEKS INTRAVENOUS
     Route: 042
  2. MAGNESIUM SULFATE [Suspect]
     Active Substance: MAGNESIUM SULFATE

REACTIONS (1)
  - Hypomagnesaemia [None]

NARRATIVE: CASE EVENT DATE: 20230103
